FAERS Safety Report 8075926-0 (Version None)
Quarter: 2012Q1

REPORT INFORMATION
  Report Type: 
  Country: None (occurrence: None)
  Receive Date: 20120127
  Receipt Date: 20120123
  Transmission Date: 20120608
  Serious: Yes (Other)
  Sender: FDA-Public Use
  Company Number: US-PFIZER INC-2012018471

PATIENT
  Sex: Male
  Weight: 90.703 kg

DRUGS (7)
  1. DICLOFENAC [Concomitant]
     Indication: TREMOR
     Dosage: UNK
  2. VIAGRA [Suspect]
     Indication: ERECTILE DYSFUNCTION
     Dosage: 50 MG, AS NEEDED
     Route: 048
     Dates: start: 20080101
  3. LITHIUM [Concomitant]
     Indication: TREMOR
     Dosage: UNK
  4. NEURONTIN [Concomitant]
     Indication: TREMOR
     Dosage: UNK
  5. VIAGRA [Suspect]
     Dosage: 100 MG, AS NEEDED
     Route: 048
  6. HYDROCODONE [Concomitant]
     Indication: TREMOR
     Dosage: UNK
  7. XANAX [Concomitant]
     Indication: TREMOR
     Dosage: UNK

REACTIONS (3)
  - MULTIPLE SCLEROSIS [None]
  - VITAMIN B COMPLEX DEFICIENCY [None]
  - DRUG INEFFECTIVE [None]
